FAERS Safety Report 8165516-3 (Version None)
Quarter: 2012Q1

REPORT INFORMATION
  Report Type: 
  Country: None (occurrence: None)
  Receive Date: 20120103
  Receipt Date: 20111026
  Transmission Date: 20120608
  Serious: No
  Sender: FDA-Public Use
  Company Number: AE-2011-002230

PATIENT
  Age: 50 Year
  Sex: Male

DRUGS (8)
  1. PEGASYS [Concomitant]
  2. NOVOLOG [Concomitant]
  3. LABETALOL HCL [Concomitant]
  4. NEURONTIN [Concomitant]
  5. INCIVEK [Suspect]
     Dosage: 2250 MG (750 MG, 3 IN 1 D), ORAL
     Route: 048
     Dates: start: 20110916
  6. ZOLOFT (SERTRLAINE HYDROCHLORIDE) [Concomitant]
  7. RIBAVIRIN [Concomitant]
  8. LANTUS [Concomitant]

REACTIONS (2)
  - ANXIETY [None]
  - ABNORMAL FAECES [None]
